FAERS Safety Report 5657921-1 (Version None)
Quarter: 2008Q1

REPORT INFORMATION
  Report Type: 
  Country: None (occurrence: None)
  Receive Date: 20080305
  Receipt Date: 20080229
  Transmission Date: 20080703
  Serious: Yes (Hospitalization)
  Sender: FDA-Public Use
  Company Number: LTI2007A00348

PATIENT
  Age: 79 Year
  Sex: Male

DRUGS (7)
  1. LEUPROLIDE ACETATE [Suspect]
     Indication: PROSTATE CANCER
     Dosage: 11.25 MG (11.25 MG, 1 IN 1 3 M), SUBCUTANEOUS
     Route: 058
     Dates: start: 20030613, end: 20051213
  2. FLUTAMIDE [Concomitant]
  3. AMLODIPINE BESYLATE [Concomitant]
  4. COAPROVEL (KARVEA HCT) [Concomitant]
  5. ASPEGIC 1000 [Concomitant]
  6. INSULATARD NPH HUMAN [Concomitant]
  7. ATORVASTATIN CALCIUM [Concomitant]

REACTIONS (1)
  - WOUND NECROSIS [None]
